FAERS Safety Report 16262315 (Version 1)
Quarter: 2019Q2

REPORT INFORMATION
  Report Type: Spontaneous
  Country: US (occurrence: US)
  Receive Date: 20190501
  Receipt Date: 20190501
  Transmission Date: 20190711
  Serious: No
  Sender: FDA-Public Use
  Company Number: US-TEIKOKU PHARMA USA-TPU2019-00361

PATIENT
  Sex: Male

DRUGS (1)
  1. LIDODERM [Suspect]
     Active Substance: LIDOCAINE
     Indication: PRODUCT USED FOR UNKNOWN INDICATION
     Dosage: BACK
     Route: 061

REACTIONS (1)
  - Chest pain [Not Recovered/Not Resolved]
